FAERS Safety Report 9739049 (Version 2)
Quarter: 2013Q4

REPORT INFORMATION
  Report Type: Spontaneous
  Country: US (occurrence: US)
  Receive Date: 20131209
  Receipt Date: 20131223
  Transmission Date: 20140711
  Serious: Yes (Other)
  Sender: FDA-Public Use
  Company Number: US-BAYER-2013-148645

PATIENT
  Age: 47 Year
  Sex: Female

DRUGS (8)
  1. YAZ [Suspect]
  2. YASMIN [Suspect]
     Route: 048
  3. MAXALT MLT [Concomitant]
     Dosage: 10 MG, UNK
     Route: 048
     Dates: start: 20110331
  4. FIORICET [Concomitant]
     Indication: HEADACHE
     Route: 048
  5. MECLIZINE [Concomitant]
     Dosage: 25 MG, TID
     Route: 048
  6. SUMATRIPTAN SUCCINATE [Concomitant]
     Dosage: 25 MG, UNK
     Route: 048
     Dates: start: 20110427, end: 20110728
  7. TRAMADOL HYDROCHLORIDE [Concomitant]
     Dosage: 50 MG, UNK
     Route: 048
     Dates: start: 20110427, end: 20121129
  8. CLINDAMYCIN HYDROCHLORIDE [Concomitant]
     Dosage: 300 MG, UNK
     Route: 048
     Dates: start: 20110526

REACTIONS (1)
  - Deep vein thrombosis [None]
